FAERS Safety Report 6405742-4 (Version None)
Quarter: 2009Q4

REPORT INFORMATION
  Report Type: 
  Country: None (occurrence: None)
  Receive Date: 20091016
  Receipt Date: 20091016
  Transmission Date: 20100525
  Serious: No
  Sender: FDA-Public Use
  Company Number: None

PATIENT
  Age: 76 Year
  Sex: Female
  Weight: 77.1115 kg

DRUGS (1)
  1. CIPROFLOXACIN 3 TIMES GIVEN IN 09 [Suspect]
     Indication: INFECTION
     Dosage: 500 M.G. 2 DAY- 10 DAYS

REACTIONS (4)
  - ARTHRALGIA [None]
  - GAIT DISTURBANCE [None]
  - MUSCLE DISORDER [None]
  - TENDON DISORDER [None]
